FAERS Safety Report 5280277-3 (Version None)
Quarter: 2007Q1

REPORT INFORMATION
  Report Type: 
  Country: None (occurrence: None)
  Receive Date: 20070329
  Receipt Date: 20070326
  Transmission Date: 20070707
  Serious: Yes (Other)
  Sender: FDA-Public Use
  Company Number: US-GLAXOSMITHKLINE-A0644660A

PATIENT
  Age: 68 Year
  Sex: Female

DRUGS (4)
  1. AVANDARYL [Suspect]
     Route: 048
     Dates: start: 20061001
  2. GLUCOPHAGE [Concomitant]
  3. ZETIA [Concomitant]
  4. NOVOLOG [Concomitant]

REACTIONS (5)
  - BLOOD GLUCOSE FLUCTUATION [None]
  - BRONCHITIS [None]
  - GASTROENTERITIS VIRAL [None]
  - PYREXIA [None]
  - VISION BLURRED [None]
